FAERS Safety Report 5690509-5 (Version None)
Quarter: 2008Q1

REPORT INFORMATION
  Report Type: 
  Country: None (occurrence: None)
  Receive Date: 20080331
  Receipt Date: 20080331
  Transmission Date: 20080703
  Serious: No
  Sender: FDA-Public Use
  Company Number: None

PATIENT
  Age: 58 Year
  Sex: Female
  Weight: 46.2669 kg

DRUGS (1)
  1. ACCOLATE [Suspect]
     Indication: ASTHMA
     Dosage: 20 MG 2 X PER DAY PO
     Route: 048
     Dates: start: 19980101, end: 20080327

REACTIONS (2)
  - DEPRESSION [None]
  - NO THERAPEUTIC RESPONSE [None]
